FAERS Safety Report 16008132 (Version 5)
Quarter: 2020Q1

REPORT INFORMATION
  Report Type: Spontaneous
  Country: US (occurrence: US)
  Receive Date: 20190226
  Receipt Date: 20200130
  Transmission Date: 20200409
  Serious: Yes (Hospitalization, Other)
  Sender: FDA-Public Use
  Company Number: US-ASTRAZENECA-2018SF01034

PATIENT
  Age: 22024 Day
  Sex: Male

DRUGS (26)
  1. PRILOSEC [Suspect]
     Active Substance: OMEPRAZOLE MAGNESIUM
     Indication: GASTROOESOPHAGEAL REFLUX DISEASE
     Route: 048
     Dates: start: 20080101, end: 20091231
  2. ZETIA [Concomitant]
     Active Substance: EZETIMIBE
  3. PRILOSEC OTC [Suspect]
     Active Substance: OMEPRAZOLE MAGNESIUM
     Indication: GASTROOESOPHAGEAL REFLUX DISEASE
     Route: 048
  4. PRILOSEC OTC [Suspect]
     Active Substance: OMEPRAZOLE MAGNESIUM
     Indication: GASTROOESOPHAGEAL REFLUX DISEASE
     Route: 048
     Dates: start: 200801, end: 200912
  5. LISINOPRIL. [Concomitant]
     Active Substance: LISINOPRIL
  6. DILTIAZEM. [Concomitant]
     Active Substance: DILTIAZEM
  7. NEXIUM [Suspect]
     Active Substance: ESOMEPRAZOLE MAGNESIUM
     Indication: GASTROOESOPHAGEAL REFLUX DISEASE
     Route: 048
     Dates: start: 20080101, end: 20091231
  8. PRILOSEC [Suspect]
     Active Substance: OMEPRAZOLE MAGNESIUM
     Indication: GASTROOESOPHAGEAL REFLUX DISEASE
     Dosage: GENERIC
     Route: 065
     Dates: start: 200804, end: 200807
  9. PREVACID 24 HR [Suspect]
     Active Substance: LANSOPRAZOLE
     Route: 065
  10. MIRTAZAPINE. [Concomitant]
     Active Substance: MIRTAZAPINE
  11. ACETAMINOPHEN. [Concomitant]
     Active Substance: ACETAMINOPHEN
  12. PRILOSEC [Suspect]
     Active Substance: OMEPRAZOLE MAGNESIUM
     Indication: GASTROOESOPHAGEAL REFLUX DISEASE
     Route: 048
  13. PRILOSEC [Suspect]
     Active Substance: OMEPRAZOLE MAGNESIUM
     Indication: GASTROOESOPHAGEAL REFLUX DISEASE
     Route: 048
     Dates: start: 200801, end: 200912
  14. ASPIRIN. [Concomitant]
     Active Substance: ASPIRIN
  15. RANITIDINE. [Concomitant]
     Active Substance: RANITIDINE
  16. NEXIUM 24HR [Suspect]
     Active Substance: ESOMEPRAZOLE MAGNESIUM
     Route: 048
  17. PRILOSEC OTC [Suspect]
     Active Substance: OMEPRAZOLE MAGNESIUM
     Indication: GASTROOESOPHAGEAL REFLUX DISEASE
     Route: 048
     Dates: start: 20080101, end: 20091231
  18. MUCINEX [Concomitant]
     Active Substance: GUAIFENESIN
  19. SEROQUEL [Concomitant]
     Active Substance: QUETIAPINE FUMARATE
  20. AMITRIPTYLINE [Concomitant]
     Active Substance: AMITRIPTYLINE
  21. LORATADINE. [Concomitant]
     Active Substance: LORATADINE
  22. FUROSEMIDE. [Concomitant]
     Active Substance: FUROSEMIDE
  23. NEXIUM [Suspect]
     Active Substance: ESOMEPRAZOLE MAGNESIUM
     Indication: GASTROOESOPHAGEAL REFLUX DISEASE
     Route: 048
  24. PREVACID [Suspect]
     Active Substance: LANSOPRAZOLE
     Route: 065
  25. NEXIUM [Suspect]
     Active Substance: ESOMEPRAZOLE MAGNESIUM
     Indication: GASTROOESOPHAGEAL REFLUX DISEASE
     Route: 048
     Dates: start: 200801, end: 200912
  26. ADVAIR DISKUS [Concomitant]
     Active Substance: FLUTICASONE PROPIONATE\SALMETEROL XINAFOATE

REACTIONS (5)
  - Renal failure [Unknown]
  - Renal injury [Unknown]
  - Acute kidney injury [Not Recovered/Not Resolved]
  - Chronic kidney disease [Not Recovered/Not Resolved]
  - End stage renal disease [Not Recovered/Not Resolved]

NARRATIVE: CASE EVENT DATE: 20080401
